FAERS Safety Report 20278748 (Version 1)
Quarter: 2022Q1

REPORT INFORMATION
  Report Type: Other
  Country: IE (occurrence: IE)
  Receive Date: 20220103
  Receipt Date: 20220103
  Transmission Date: 20220423
  Serious: Yes (Other)
  Sender: FDA-Public Use
  Company Number: IE-ASTELLAS-2021US050118

PATIENT
  Age: 67 Year
  Sex: Female

DRUGS (1)
  1. AMPHOTERICIN B [Suspect]
     Active Substance: AMPHOTERICIN B
     Indication: Product used for unknown indication
     Dosage: UNK UNK, UNKNOWN FREQ.
     Route: 042
     Dates: start: 20211023

REACTIONS (2)
  - Syncope [Unknown]
  - Nausea [Unknown]

NARRATIVE: CASE EVENT DATE: 20211023
